FAERS Safety Report 19281094 (Version 1)
Quarter: 2021Q2

REPORT INFORMATION
  Report Type: Spontaneous
  Country: US (occurrence: US)
  Receive Date: 20210521
  Receipt Date: 20210521
  Transmission Date: 20210717
  Serious: No
  Sender: FDA-Public Use
  Company Number: US-ASTRAZENECA-2021A434965

PATIENT
  Sex: Female

DRUGS (2)
  1. FASENRA [Suspect]
     Active Substance: BENRALIZUMAB
     Dosage: ONCE/SINGLE ADMINISTRATION
     Route: 058
     Dates: start: 20210402
  2. COVID?19 VACCINE NOS. [Suspect]
     Active Substance: COVID-19 VACCINE NOS
     Route: 065

REACTIONS (4)
  - Diarrhoea [Unknown]
  - Abdominal distension [Not Recovered/Not Resolved]
  - Pain [Unknown]
  - Abdominal pain upper [Not Recovered/Not Resolved]
